FAERS Safety Report 9921151 (Version 1)
Quarter: 2014Q1

REPORT INFORMATION
  Report Type: Spontaneous
  Country: GB (occurrence: GB)
  Receive Date: 20140225
  Receipt Date: 20140225
  Transmission Date: 20141002
  Serious: Yes (Other)
  Sender: FDA-Public Use
  Company Number: GB-ACCORD-021975

PATIENT
  Age: 6 Decade
  Sex: Female

DRUGS (1)
  1. TRAMADOL/TRAMADOL HYDROCHLORIDE [Suspect]
     Indication: SURGERY
     Dosage: TAKING TRAMADOL FROM THE LAST 10 YEARS

REACTIONS (1)
  - Transient ischaemic attack [Recovered/Resolved]
